FAERS Safety Report 8843098 (Version 2)
Quarter: 2013Q1

REPORT INFORMATION
  Report Type: Report from Study
  Country: GB (occurrence: GB)
  Receive Date: 20121016
  Receipt Date: 20130117
  Transmission Date: 20140127
  Serious: Yes (Other)
  Sender: FDA-Public Use
  Company Number: GB-ROCHE-1142411

PATIENT
  Age: 66 Year
  Sex: Male
  Weight: 76 kg

DRUGS (1)
  1. RITUXIMAB [Suspect]
     Indication: PRODUCT USED FOR UNKNOWN INDICATION
     Route: 065
     Dates: start: 20090429

REACTIONS (4)
  - Oesophageal squamous cell carcinoma [Recovered/Resolved]
  - Lip neoplasm malignant stage unspecified [Unknown]
  - Lip and/or oral cavity cancer stage 0 [Unknown]
  - Pharyngeal cancer [Unknown]
